FAERS Safety Report 8442713-0 (Version None)
Quarter: 2012Q2

REPORT INFORMATION
  Report Type: 
  Country: None (occurrence: None)
  Receive Date: 20120615
  Receipt Date: 20120605
  Transmission Date: 20120825
  Serious: No
  Sender: FDA-Public Use
  Company Number: US-ASTRAZENECA-2011SE35991

PATIENT
  Age: 87 Year
  Sex: Female
  Weight: 42.6 kg

DRUGS (8)
  1. ZERTEC [Concomitant]
     Indication: SINUS DISORDER
  2. LIPITOR [Concomitant]
  3. SYMBICORT [Suspect]
     Dosage: 160/4.5 ONE PUFF
     Route: 055
  4. HIGH BLOOD PRESSURE MEDICATIONS [Concomitant]
  5. SYMBICORT [Suspect]
     Indication: DYSPNOEA
     Dosage: 160/4.5 TWO TIMES DAILY
     Route: 055
     Dates: start: 20110501
  6. CLARITIN [Concomitant]
     Indication: HYPERSENSITIVITY
  7. SYMBICORT [Suspect]
     Dosage: 160/4.5 ONE PUFF
     Route: 055
  8. SYMBICORT [Suspect]
     Indication: CHRONIC OBSTRUCTIVE PULMONARY DISEASE
     Dosage: 160/4.5 TWO TIMES DAILY
     Route: 055
     Dates: start: 20110501

REACTIONS (4)
  - ORAL CANDIDIASIS [None]
  - APHONIA [None]
  - OCULAR HYPERAEMIA [None]
  - OFF LABEL USE [None]
